FAERS Safety Report 15414574 (Version 1)
Quarter: 2018Q3

REPORT INFORMATION
  Report Type: Spontaneous
  Country: US (occurrence: US)
  Receive Date: 20180921
  Receipt Date: 20180921
  Transmission Date: 20181010
  Serious: No
  Sender: FDA-Public Use
  Company Number: US-NOVOPROD-584188

PATIENT
  Age: 30 Year
  Sex: Female

DRUGS (1)
  1. VICTOZA [Suspect]
     Active Substance: LIRAGLUTIDE
     Indication: WEIGHT DECREASED
     Dosage: 0.6 MG, UNK
     Route: 058
     Dates: start: 20160201, end: 2017

REACTIONS (4)
  - Abdominal discomfort [Recovered/Resolved]
  - Migraine [Recovered/Resolved]
  - Product use in unapproved indication [Recovered/Resolved]
  - Posture abnormal [Recovered/Resolved]

NARRATIVE: CASE EVENT DATE: 2017
